FAERS Safety Report 17305588 (Version 1)
Quarter: 2020Q1

REPORT INFORMATION
  Report Type: Spontaneous
  Country: US (occurrence: US)
  Receive Date: 20200123
  Receipt Date: 20200123
  Transmission Date: 20200409
  Serious: Yes (Death)
  Sender: FDA-Public Use
  Company Number: US-PFIZER INC-2019518049

PATIENT
  Age: 73 Year
  Sex: Male

DRUGS (2)
  1. INLYTA [Suspect]
     Active Substance: AXITINIB
     Indication: RENAL CANCER
     Dosage: 2 MG, 2X/DAY
  2. INLYTA [Suspect]
     Active Substance: AXITINIB
     Indication: METASTASES TO BONE
     Dosage: 1 MG, UNK

REACTIONS (1)
  - Death [Fatal]
